FAERS Safety Report 10923649 (Version 2)
Quarter: 2015Q2

REPORT INFORMATION
  Report Type: Report from Study
  Country: GB (occurrence: GB)
  Receive Date: 20150318
  Receipt Date: 20150628
  Transmission Date: 20150821
  Serious: Yes (Hospitalization)
  Sender: FDA-Public Use
  Company Number: GB-AMGEN-GBRNI2015024771

PATIENT
  Age: 76 Year
  Sex: Female
  Weight: 58 kg

DRUGS (2)
  1. ETANERCEPT [Suspect]
     Active Substance: ETANERCEPT
     Indication: RHEUMATOID ARTHRITIS
     Dosage: 25 MG, 2X/WEEK
     Route: 065
     Dates: start: 20050426, end: 20130528
  2. LEFLUNOMIDE. [Concomitant]
     Active Substance: LEFLUNOMIDE
     Dosage: UNK
     Dates: start: 20130528

REACTIONS (1)
  - Gastrointestinal carcinoma [Recovered/Resolved]

NARRATIVE: CASE EVENT DATE: 20130528
